FAERS Safety Report 12601432 (Version 1)
Quarter: 2016Q3

REPORT INFORMATION
  Report Type: Other
  Country: GB (occurrence: GB)
  Receive Date: 20160728
  Receipt Date: 20160728
  Transmission Date: 20161109
  Serious: Yes (Life-Threatening, Hospitalization, Other)
  Sender: FDA-Public Use
  Company Number: GB-LUPIN PHARMACEUTICALS INC.-E2B_00005324

PATIENT
  Age: 68 Year
  Sex: Male
  Weight: 59.8 kg

DRUGS (2)
  1. AMIODARONE [Suspect]
     Active Substance: AMIODARONE
     Indication: VENTRICULAR TACHYCARDIA
     Route: 048
     Dates: start: 20151120, end: 20160407
  2. LEVETIRACETAM. [Suspect]
     Active Substance: LEVETIRACETAM
     Indication: PARTIAL SEIZURES
     Route: 048
     Dates: start: 20151112

REACTIONS (2)
  - Acute hepatic failure [Unknown]
  - Jaundice [Unknown]

NARRATIVE: CASE EVENT DATE: 20160404
